FAERS Safety Report 11362076 (Version 2)
Quarter: 2015Q3

REPORT INFORMATION
  Report Type: Spontaneous
  Country: CN (occurrence: CN)
  Receive Date: 20150810
  Receipt Date: 20150819
  Transmission Date: 20151125
  Serious: Yes (Hospitalization, Other)
  Sender: FDA-Public Use
  Company Number: CN-ASTRAZENECA-2015SE66156

PATIENT
  Age: 74 Year
  Sex: Female

DRUGS (21)
  1. LOSEC [Suspect]
     Active Substance: OMEPRAZOLE
     Indication: DYSPEPSIA
     Dosage: LOSEC OTC 10 MG, DAILY
     Route: 048
  2. LOSEC [Suspect]
     Active Substance: OMEPRAZOLE
     Indication: REGURGITATION
     Route: 048
  3. NEXIUM [Concomitant]
     Active Substance: ESOMEPRAZOLE MAGNESIUM
  4. QUTONG [Concomitant]
     Indication: LIVER DISORDER
     Dates: start: 2014
  5. LOSEC [Suspect]
     Active Substance: OMEPRAZOLE
     Indication: DYSPEPSIA
     Route: 048
  6. LOSEC [Suspect]
     Active Substance: OMEPRAZOLE
     Indication: REGURGITATION
     Dosage: STRENGTH: 10/20 MG
     Route: 048
  7. LOSEC [Suspect]
     Active Substance: OMEPRAZOLE
     Indication: REGURGITATION
     Dosage: OMEPRAZOLE
     Route: 048
  8. LOSEC [Suspect]
     Active Substance: OMEPRAZOLE
     Indication: DYSPEPSIA
     Route: 048
  9. LOSEC [Suspect]
     Active Substance: OMEPRAZOLE
     Indication: ERUCTATION
     Route: 048
  10. LOSEC [Suspect]
     Active Substance: OMEPRAZOLE
     Indication: DYSPEPSIA
     Dosage: STRENGTH: 10/20 MG
     Route: 048
  11. QUTONG [Concomitant]
     Indication: GASTRIC DISORDER
     Dates: start: 2014
  12. WEITAI [Concomitant]
  13. ENZYMES [Concomitant]
  14. LOSEC [Suspect]
     Active Substance: OMEPRAZOLE
     Indication: ERUCTATION
     Dosage: LOSEC OTC 10 MG, DAILY
     Route: 048
  15. LOSEC [Suspect]
     Active Substance: OMEPRAZOLE
     Indication: ERUCTATION
     Route: 048
  16. LOSEC [Suspect]
     Active Substance: OMEPRAZOLE
     Indication: REGURGITATION
     Dosage: LOSEC OTC 10 MG, DAILY
     Route: 048
  17. LOSEC [Suspect]
     Active Substance: OMEPRAZOLE
     Indication: DYSPEPSIA
     Dosage: OMEPRAZOLE
     Route: 048
  18. ALUMINIUM HYDROXIDE [Concomitant]
     Active Substance: ALUMINUM HYDROXIDE
     Dates: end: 20150705
  19. LOSEC [Suspect]
     Active Substance: OMEPRAZOLE
     Indication: REGURGITATION
     Route: 048
  20. LOSEC [Suspect]
     Active Substance: OMEPRAZOLE
     Indication: ERUCTATION
     Dosage: OMEPRAZOLE
     Route: 048
  21. LOSEC [Suspect]
     Active Substance: OMEPRAZOLE
     Indication: ERUCTATION
     Dosage: STRENGTH: 10/20 MG
     Route: 048

REACTIONS (8)
  - Dyspepsia [Recovering/Resolving]
  - Regurgitation [Unknown]
  - Gastric ulcer [Unknown]
  - Eructation [Unknown]
  - Chronic gastritis [Unknown]
  - Hiccups [Unknown]
  - Mobility decreased [Unknown]
  - Intentional product misuse [Unknown]
